FAERS Safety Report 7460607-4 (Version None)
Quarter: 2011Q2

REPORT INFORMATION
  Report Type: 
  Country: None (occurrence: None)
  Receive Date: 20110505
  Receipt Date: 20110503
  Transmission Date: 20111010
  Serious: Yes (Hospitalization, Other)
  Sender: FDA-Public Use
  Company Number: US-ABBOTT-11P-163-0717193-00

PATIENT
  Sex: Female
  Weight: 77.18 kg

DRUGS (5)
  1. HUMIRA [Suspect]
     Indication: PSORIASIS
     Dates: start: 20061101, end: 20100716
  2. FOLIC ACID [Concomitant]
     Indication: PROPHYLAXIS
  3. FOLIC ACID [Concomitant]
     Indication: ADVERSE DRUG REACTION
  4. HUMIRA [Suspect]
     Indication: PSORIATIC ARTHROPATHY
  5. METHOTREXATE [Concomitant]
     Indication: PSORIATIC ARTHROPATHY

REACTIONS (5)
  - BENIGN NEOPLASM [None]
  - ABDOMINAL PAIN UPPER [None]
  - GALLBLADDER DISORDER [None]
  - INJECTION SITE PAIN [None]
  - TYMPANIC MEMBRANE PERFORATION [None]
